FAERS Safety Report 7610138-3 (Version None)
Quarter: 2011Q3

REPORT INFORMATION
  Report Type: 
  Country: None (occurrence: None)
  Receive Date: 20110715
  Receipt Date: 20110706
  Transmission Date: 20111222
  Serious: No
  Sender: FDA-Public Use
  Company Number: US-BIOGENIDEC-2011BI025077

PATIENT
  Sex: Male

DRUGS (1)
  1. TYSABRI [Suspect]
     Indication: MULTIPLE SCLEROSIS
     Route: 042
     Dates: start: 20080810

REACTIONS (8)
  - GAIT DISTURBANCE [None]
  - AMNESIA [None]
  - FATIGUE [None]
  - LOSS OF CONTROL OF LEGS [None]
  - SENSORY DISTURBANCE [None]
  - FALL [None]
  - LACERATION [None]
  - CONTUSION [None]
